FAERS Safety Report 13690368 (Version 5)
Quarter: 2018Q2

REPORT INFORMATION
  Report Type: Report from Study
  Country: US (occurrence: US)
  Receive Date: 20170626
  Receipt Date: 20180420
  Transmission Date: 20180711
  Serious: Yes (Hospitalization)
  Sender: FDA-Public Use
  Company Number: US-JNJFOC-20170301122

PATIENT
  Age: 70 Year
  Sex: Female

DRUGS (25)
  1. CARVEDILOL. [Concomitant]
     Active Substance: CARVEDILOL
  2. ASPIRIN. [Concomitant]
     Active Substance: ASPIRIN
  3. XARELTO [Suspect]
     Active Substance: RIVAROXABAN
     Indication: THROMBOSIS PROPHYLAXIS
     Dosage: 20 MG QD, WITH FOOD
     Route: 065
  4. DIGOXIN. [Concomitant]
     Active Substance: DIGOXIN
     Route: 048
  5. PRILOSEC [Concomitant]
     Active Substance: OMEPRAZOLE MAGNESIUM
  6. BENAZEPRIL HCL [Concomitant]
     Active Substance: BENAZEPRIL HYDROCHLORIDE
  7. FISH OIL [Concomitant]
     Active Substance: FISH OIL
     Dosage: WITH MEAL
  8. VITAMIN C [Concomitant]
     Active Substance: ASCORBIC ACID
     Dosage: AS DIRECTED
  9. XARELTO [Suspect]
     Active Substance: RIVAROXABAN
     Indication: ATRIAL FIBRILLATION
     Dosage: 20 MG QD, WITH FOOD
     Route: 065
  10. WELLBUTRIN [Concomitant]
     Active Substance: BUPROPION HYDROCHLORIDE
  11. VITAMIN D [Concomitant]
     Active Substance: CHOLECALCIFEROL
  12. MULTIVITAMINS [Concomitant]
     Active Substance: VITAMINS
     Dosage: WITH MEAL
  13. IMBRUVICA [Suspect]
     Active Substance: IBRUTINIB
     Indication: CHRONIC LYMPHOCYTIC LEUKAEMIA
     Route: 048
     Dates: start: 20161214
  14. WELLBUTRIN [Concomitant]
     Active Substance: BUPROPION HYDROCHLORIDE
  15. FIBER [Concomitant]
     Active Substance: PSYLLIUM HUSK
  16. IMBRUVICA [Suspect]
     Active Substance: IBRUTINIB
     Indication: CHRONIC LYMPHOCYTIC LEUKAEMIA
     Route: 048
     Dates: start: 20160601
  17. ZETIA [Concomitant]
     Active Substance: EZETIMIBE
  18. CRESTOR [Concomitant]
     Active Substance: ROSUVASTATIN CALCIUM
  19. CALCIUM CARBONATE W/COLECALCIFEROL [Concomitant]
     Active Substance: CALCIUM CARBONATE\CHOLECALCIFEROL
  20. NORVASC [Concomitant]
     Active Substance: AMLODIPINE BESYLATE
  21. ISOSORBIDE DINITRATE. [Concomitant]
     Active Substance: ISOSORBIDE DINITRATE
  22. IMBRUVICA [Suspect]
     Active Substance: IBRUTINIB
     Indication: CHRONIC LYMPHOCYTIC LEUKAEMIA
     Route: 048
     Dates: start: 20171110
  23. ALLOPURINOL. [Concomitant]
     Active Substance: ALLOPURINOL
  24. CALCIUM [Concomitant]
     Active Substance: CALCIUM
     Dosage: WITH MEAL
  25. IBUFROFEN [Concomitant]
     Dosage: AS DIRECTED

REACTIONS (15)
  - Lymphocytosis [Unknown]
  - Rash generalised [Recovered/Resolved]
  - Product use issue [Unknown]
  - Ecchymosis [Unknown]
  - Urinary tract infection [Recovered/Resolved]
  - Neutrophil count decreased [Unknown]
  - Petechiae [Unknown]
  - Nausea [Recovered/Resolved]
  - Contusion [Unknown]
  - White blood cell count increased [Unknown]
  - Myocardial infarction [Unknown]
  - Off label use [Unknown]
  - Haemoglobin decreased [Unknown]
  - Atrial fibrillation [Unknown]
  - Fall [Recovering/Resolving]

NARRATIVE: CASE EVENT DATE: 20161206
